FAERS Safety Report 14535722 (Version 3)
Quarter: 2018Q2

REPORT INFORMATION
  Report Type: Spontaneous
  Country: JP (occurrence: JP)
  Receive Date: 20180215
  Receipt Date: 20180423
  Transmission Date: 20180711
  Serious: Yes (Hospitalization, Other)
  Sender: FDA-Public Use
  Company Number: JP-ASTRAZENECA-2018SE18126

PATIENT
  Age: 53 Year
  Sex: Male
  Weight: 88 kg

DRUGS (10)
  1. EFIENT [Concomitant]
     Active Substance: PRASUGREL HYDROCHLORIDE
     Route: 065
     Dates: start: 20170706, end: 20170802
  2. ARTIST [Concomitant]
     Active Substance: CARVEDILOL
     Route: 065
     Dates: start: 20170709, end: 20170802
  3. CRESTOR [Suspect]
     Active Substance: ROSUVASTATIN CALCIUM
     Indication: MYOCARDIAL INFARCTION
     Route: 048
     Dates: start: 20170706, end: 20170718
  4. CALONAL [Concomitant]
     Active Substance: ACETAMINOPHEN
     Dosage: DOSE UNKNOWN
     Route: 065
     Dates: start: 20170716
  5. TAKEPRON [Concomitant]
     Active Substance: LANSOPRAZOLE
     Route: 065
     Dates: start: 20170706, end: 20170729
  6. CALONAL [Concomitant]
     Active Substance: ACETAMINOPHEN
     Dosage: PATIENT HISTORY
     Route: 065
  7. CRESTOR [Suspect]
     Active Substance: ROSUVASTATIN CALCIUM
     Indication: MYOCARDIAL INFARCTION
     Dosage: DOSE UNKNOWN
     Route: 048
  8. GASMOTIN [Concomitant]
     Active Substance: MOSAPRIDE CITRATE
     Dosage: DOSE UNKNOWN
     Route: 065
     Dates: start: 20170716
  9. BAYASPIRIN [Concomitant]
     Active Substance: ASPIRIN
     Indication: MYOCARDIAL INFARCTION
     Route: 065
     Dates: start: 20170706, end: 20170802
  10. LIPITOR [Concomitant]
     Active Substance: ATORVASTATIN CALCIUM
     Dosage: DOSE UNKNOWN
     Route: 065
     Dates: start: 20170719

REACTIONS (6)
  - Sepsis [Recovered/Resolved]
  - Off label use [Unknown]
  - Toxic epidermal necrolysis [Recovered/Resolved]
  - Hepatic enzyme increased [Recovered/Resolved]
  - Product use in unapproved indication [Unknown]
  - Septic embolus [Unknown]

NARRATIVE: CASE EVENT DATE: 20170718
